FAERS Safety Report 20804148 (Version 1)
Quarter: 2022Q2

REPORT INFORMATION
  Report Type: Spontaneous
  Country: US (occurrence: US)
  Receive Date: 20220509
  Receipt Date: 20220509
  Transmission Date: 20220721
  Serious: No
  Sender: FDA-Public Use
  Company Number: US-PFIZER INC-202101770765

PATIENT
  Age: 24 Year
  Sex: Male
  Weight: 99.79 kg

DRUGS (4)
  1. CYTOMEL [Suspect]
     Active Substance: LIOTHYRONINE SODIUM
     Indication: Hydrocephalus
     Dosage: 50 UG, DAILY (TAKE 2 A DAY SO IT IS 50 MCG)
     Route: 048
  2. CYTOMEL [Suspect]
     Active Substance: LIOTHYRONINE SODIUM
     Indication: Autoimmune disorder
     Dosage: 25 UG, 1X/DAY(25MCG TABLET, 1.5 TABLETS ONCE DAILY)
     Route: 048
  3. ARMOUR THYROID [Concomitant]
     Active Substance: THYROID, PORCINE
     Indication: Hypothyroidism
     Dosage: UNK UNK, 1X/DAY (4 GRAINS, ONCE EVERY MORNING)
  4. PREDNISONE [Concomitant]
     Active Substance: PREDNISONE
     Indication: Adrenal disorder
     Dosage: 5 MG, 1X/DAY

REACTIONS (4)
  - Malaise [Unknown]
  - Prescription drug used without a prescription [Unknown]
  - Product use in unapproved indication [Unknown]
  - Expired product administered [Unknown]
